FAERS Safety Report 6258994-8 (Version None)
Quarter: 2009Q3

REPORT INFORMATION
  Report Type: 
  Country: None (occurrence: None)
  Receive Date: 20090707
  Receipt Date: 20090629
  Transmission Date: 20100115
  Serious: Yes (Other)
  Sender: FDA-Public Use
  Company Number: PHHY2009JP26403

PATIENT

DRUGS (1)
  1. COMTAN [Suspect]

REACTIONS (1)
  - EOSINOPHILIA [None]
